FAERS Safety Report 18815491 (Version 3)
Quarter: 2021Q1

REPORT INFORMATION
  Report Type: Report from Study
  Country: US (occurrence: US)
  Receive Date: 20210201
  Receipt Date: 20210315
  Transmission Date: 20210419
  Serious: Yes (Other)
  Sender: FDA-Public Use
  Company Number: US-EMD SERONO-9194759

PATIENT
  Age: 48 Year
  Sex: Female

DRUGS (1)
  1. REBIF [Suspect]
     Active Substance: INTERFERON BETA-1A
     Indication: MULTIPLE SCLEROSIS
     Route: 058
     Dates: start: 20080217

REACTIONS (10)
  - Anxiety [Unknown]
  - Loss of consciousness [Unknown]
  - Chest pain [Unknown]
  - Feeling abnormal [Unknown]
  - Vertigo [Unknown]
  - Injection site induration [Unknown]
  - Menorrhagia [Recovered/Resolved]
  - Chest discomfort [Unknown]
  - Blood cholesterol increased [Unknown]
  - Dizziness [Recovering/Resolving]

NARRATIVE: CASE EVENT DATE: 202003
